FAERS Safety Report 16335925 (Version 1)
Quarter: 2019Q2

REPORT INFORMATION
  Report Type: Spontaneous
  Country: NL (occurrence: NL)
  Receive Date: 20190521
  Receipt Date: 20190521
  Transmission Date: 20190711
  Serious: Yes (Other)
  Sender: FDA-Public Use
  Company Number: NL-AUROBINDO-AUR-APL-2019-028138

PATIENT

DRUGS (3)
  1. ALENDRONIC ACID 70MG TABLETS [Suspect]
     Active Substance: ALENDRONIC ACID
     Indication: OSTEOPOROSIS PROPHYLAXIS
     Dosage: 70 MILLIGRAM, EVERY WEEK, 1 KEER PER WEEK
     Route: 065
     Dates: start: 201806, end: 20190411
  2. PREDNISON [Concomitant]
     Active Substance: PREDNISONE
     Indication: PRODUCT USED FOR UNKNOWN INDICATION
     Dosage: 1 DOSAGE FORM, IN AFBOUWSCHEMA; GESTART VANAF 60MG, ECHTER LAATSTE MAANDEN DOSERINGEN { 10MG
     Route: 065
  3. CALCIUM D [Concomitant]
     Active Substance: CALCIUM\VITAMIN D
     Indication: PRODUCT USED FOR UNKNOWN INDICATION
     Dosage: UNK, 1,25G/400IE (500MG CA)
     Route: 065

REACTIONS (2)
  - Dental necrosis [Not Recovered/Not Resolved]
  - Tooth loss [Not Recovered/Not Resolved]
